FAERS Safety Report 22330723 (Version 1)
Quarter: 2023Q2

REPORT INFORMATION
  Report Type: Spontaneous
  Country: US (occurrence: None)
  Receive Date: 20230515
  Receipt Date: 20230515
  Transmission Date: 20230721
  Serious: Yes (Death)
  Sender: FDA-Public Use
  Company Number: None

PATIENT
  Age: 80 Year
  Sex: Male
  Weight: 159 kg

DRUGS (1)
  1. VYVGART [Suspect]
     Active Substance: EFGARTIGIMOD ALFA-FCAB

REACTIONS (1)
  - COVID-19 pneumonia [None]

NARRATIVE: CASE EVENT DATE: 20230511
